FAERS Safety Report 12589954 (Version 1)
Quarter: 2016Q3

REPORT INFORMATION
  Report Type: Spontaneous
  Country: PL (occurrence: PL)
  Receive Date: 20160725
  Receipt Date: 20160725
  Transmission Date: 20161109
  Serious: Yes (Hospitalization, Other)
  Sender: FDA-Public Use
  Company Number: PL-TEVA-679706ISR

PATIENT
  Age: 26 Year
  Sex: Male

DRUGS (8)
  1. HYDROXYZINE [Concomitant]
     Active Substance: HYDROXYZINE\HYDROXYZINE HYDROCHLORIDE
     Dosage: AD HOC DOSES
  2. CLORAZEPATE POTASSIUM [Concomitant]
     Dosage: AD HOC DOSES
  3. OLANZAPINE. [Suspect]
     Active Substance: OLANZAPINE
     Indication: MANIA
  4. VALPROIC ACID. [Suspect]
     Active Substance: VALPROIC ACID
     Indication: MANIA
  5. ARIPIPRAZOLE. [Suspect]
     Active Substance: ARIPIPRAZOLE
     Indication: MANIA
  6. QUETIAPINE. [Suspect]
     Active Substance: QUETIAPINE
     Indication: MANIA
  7. MIANSERIN [Concomitant]
     Active Substance: MIANSERIN
     Indication: SLEEP DISORDER
     Dosage: PER NIGHT
  8. ZINC [Concomitant]
     Active Substance: ZINC\ZINC CHLORIDE
     Indication: HEPATO-LENTICULAR DEGENERATION

REACTIONS (8)
  - Dysphagia [Recovered/Resolved]
  - Drug ineffective [Unknown]
  - Dysarthria [Recovered/Resolved]
  - Postural tremor [Not Recovered/Not Resolved]
  - Speech disorder [Unknown]
  - Neurological decompensation [Unknown]
  - Salivary hypersecretion [Unknown]
  - Dyskinesia [Not Recovered/Not Resolved]
